FAERS Safety Report 6534491-7 (Version None)
Quarter: 2010Q1

REPORT INFORMATION
  Report Type: 
  Country: None (occurrence: None)
  Receive Date: 20100112
  Receipt Date: 20100104
  Transmission Date: 20100710
  Serious: Yes (Hospitalization)
  Sender: FDA-Public Use
  Company Number: CN-PFIZER INC-2010000088

PATIENT

DRUGS (1)
  1. GLUCOTROL [Suspect]
     Route: 048

REACTIONS (1)
  - DERMATITIS EXFOLIATIVE [None]
